FAERS Safety Report 17390001 (Version 1)
Quarter: 2020Q1

REPORT INFORMATION
  Report Type: Spontaneous
  Country: BE (occurrence: BE)
  Receive Date: 20200207
  Receipt Date: 20200207
  Transmission Date: 20200409
  Serious: Yes (Other)
  Sender: FDA-Public Use
  Company Number: BE-SA-2020SA031840

PATIENT
  Age: 44 Year
  Sex: Female
  Weight: 100 kg

DRUGS (2)
  1. LEMTRADA [Suspect]
     Active Substance: ALEMTUZUMAB
     Indication: MULTIPLE SCLEROSIS
     Dosage: THE PATIENT HAS HAD TWO TREATMENTS.
     Route: 042
     Dates: start: 20180801
  2. D-CURE [Concomitant]
     Active Substance: CHOLECALCIFEROL
     Dosage: MAINTENANCE TREATMENT

REACTIONS (1)
  - Malignant melanoma [Recovered/Resolved]

NARRATIVE: CASE EVENT DATE: 20190801
